FAERS Safety Report 4894165-5 (Version None)
Quarter: 2006Q1

REPORT INFORMATION
  Report Type: 
  Country: None (occurrence: None)
  Receive Date: 20060127
  Receipt Date: 20050913
  Transmission Date: 20060701
  Serious: No
  Sender: FDA-Public Use
  Company Number: US-GLAXOSMITHKLINE-A0574130A

PATIENT
  Sex: Female

DRUGS (3)
  1. WELLBUTRIN [Suspect]
     Indication: DEPRESSION
     Route: 048
  2. PAXIL [Suspect]
     Indication: DEPRESSION
     Route: 048
  3. EFFEXOR [Suspect]
     Indication: DEPRESSION
     Route: 065

REACTIONS (4)
  - ANXIETY [None]
  - BRONCHOSPASM [None]
  - FEELING ABNORMAL [None]
  - HYPERSENSITIVITY [None]
